FAERS Safety Report 18331295 (Version 1)
Quarter: 2020Q3

REPORT INFORMATION
  Report Type: Spontaneous
  Country: IE (occurrence: IE)
  Receive Date: 20200930
  Receipt Date: 20200930
  Transmission Date: 20201103
  Serious: Yes (Death)
  Sender: FDA-Public Use
  Company Number: IE-EXELIXIS-CABO-20031961

PATIENT
  Age: 60 Year
  Sex: Female

DRUGS (8)
  1. MST [Concomitant]
  2. GLIPIZIDE. [Concomitant]
     Active Substance: GLIPIZIDE
  3. CABOMETYX [Suspect]
     Active Substance: CABOZANTINIB S-MALATE
     Dosage: 40 MG, QD
     Route: 048
     Dates: start: 20200716, end: 20200719
  4. ZOLEDRONIC ACID [Concomitant]
     Active Substance: ZOLEDRONIC ACID
  5. SALMETEROL [Concomitant]
     Active Substance: SALMETEROL
  6. CABOMETYX [Suspect]
     Active Substance: CABOZANTINIB S-MALATE
     Indication: RENAL CANCER METASTATIC
     Dosage: 60 MG, QD
     Route: 048
     Dates: start: 20200511
  7. PALAFER [Concomitant]
     Active Substance: FERROUS FUMARATE
  8. CYCLIZINE [Concomitant]
     Active Substance: CYCLIZINE

REACTIONS (2)
  - Death [Fatal]
  - Renal injury [Not Recovered/Not Resolved]

NARRATIVE: CASE EVENT DATE: 20200719
